FAERS Safety Report 9788351 (Version 1)
Quarter: 2013Q4

REPORT INFORMATION
  Report Type: Spontaneous
  Country: AU (occurrence: AU)
  Receive Date: 20131230
  Receipt Date: 20131230
  Transmission Date: 20140711
  Serious: Yes (Other)
  Sender: FDA-Public Use
  Company Number: PHHY2013AU150997

PATIENT
  Sex: Female

DRUGS (1)
  1. GLIVEC [Suspect]
     Indication: CHRONIC MYELOID LEUKAEMIA
     Dosage: UNK UKN, UNK

REACTIONS (5)
  - Immunodeficiency [Unknown]
  - Spinal disorder [Unknown]
  - Influenza [Unknown]
  - Back pain [Unknown]
  - Neck pain [Unknown]
